FAERS Safety Report 17363203 (Version 3)
Quarter: 2020Q2

REPORT INFORMATION
  Report Type: Spontaneous
  Country: US (occurrence: US)
  Receive Date: 20200203
  Receipt Date: 20200402
  Transmission Date: 20200713
  Serious: No
  Sender: FDA-Public Use
  Company Number: US-PFIZER INC-2020044689

PATIENT
  Age: 75 Year
  Sex: Male
  Weight: 92.97 kg

DRUGS (1)
  1. LEVOFLOXACIN. [Suspect]
     Active Substance: LEVOFLOXACIN
     Indication: INFLUENZA
     Dosage: 750 MG, DAILY
     Dates: start: 2014

REACTIONS (7)
  - Muscular weakness [Recovered/Resolved]
  - Off label use [Unknown]
  - Restless legs syndrome [Recovered/Resolved]
  - Drug hypersensitivity [Recovered/Resolved]
  - Insomnia [Recovered/Resolved]
  - Muscle spasms [Recovered/Resolved]
  - Product use in unapproved indication [Unknown]

NARRATIVE: CASE EVENT DATE: 2014
